FAERS Safety Report 12296504 (Version 1)
Quarter: 2016Q2

REPORT INFORMATION
  Report Type: Spontaneous
  Country: GR (occurrence: GR)
  Receive Date: 20160422
  Receipt Date: 20160422
  Transmission Date: 20160815
  Serious: Yes (Death, Other)
  Sender: FDA-Public Use
  Company Number: GR-009507513-1604GRC012190

PATIENT
  Age: 76 Year
  Sex: Female
  Weight: 100 kg

DRUGS (5)
  1. LASIX [Concomitant]
     Active Substance: FUROSEMIDE
     Dosage: 1 DF, QD REPORTED AS: 1X1
     Dates: end: 20160325
  2. JANUVIA [Suspect]
     Active Substance: SITAGLIPTIN PHOSPHATE
     Indication: TYPE 2 DIABETES MELLITUS
     Dosage: 100 MG, QD
     Route: 048
     Dates: start: 201512
  3. LASIX [Concomitant]
     Active Substance: FUROSEMIDE
     Dosage: 1 DF, BID
     Dates: start: 20160325
  4. CARVEPEN [Concomitant]
     Active Substance: CARVEDILOL
     Dosage: 1 DF, QD REPORTED AS: 1X1
  5. ALENDRONATE SODIUM. [Concomitant]
     Active Substance: ALENDRONATE SODIUM
     Dosage: UNK, QW

REACTIONS (2)
  - Dyspnoea [Unknown]
  - Cardiac arrest [Fatal]

NARRATIVE: CASE EVENT DATE: 20160325
